FAERS Safety Report 5492504-8 (Version None)
Quarter: 2007Q4

REPORT INFORMATION
  Report Type: 
  Country: None (occurrence: None)
  Receive Date: 20071015
  Receipt Date: 20070725
  Transmission Date: 20080405
  Serious: No
  Sender: FDA-Public Use
  Company Number: 2007SP002649

PATIENT
  Age: 53 Year
  Sex: Female

DRUGS (5)
  1. LUNESTA [Suspect]
     Indication: INSOMNIA
     Dosage: ORAL ; 3 MG ORAL
     Route: 048
     Dates: start: 20070101, end: 20070101
  2. LUNESTA [Suspect]
     Indication: INSOMNIA
     Dosage: ORAL ; 3 MG ORAL
     Route: 048
     Dates: start: 20070725
  3. EFFEXOR [Concomitant]
  4. XANAX [Concomitant]
  5. NEXIUM [Concomitant]

REACTIONS (2)
  - MIDDLE INSOMNIA [None]
  - NOCTURIA [None]
